FAERS Safety Report 22830522 (Version 10)
Quarter: 2024Q4

REPORT INFORMATION
  Report Type: Report from Study
  Country: MX (occurrence: MX)
  Receive Date: 20230817
  Receipt Date: 20241223
  Transmission Date: 20250115
  Serious: Yes (Hospitalization, Other)
  Sender: TAKEDA
  Company Number: MX-TAKEDA-MX201837794

PATIENT
  Age: 23 Year
  Sex: Male
  Weight: 52 kg

DRUGS (6)
  1. IDURSULFASE [Suspect]
     Active Substance: IDURSULFASE
     Indication: Mucopolysaccharidosis II
     Dosage: 4 DOSAGE FORM, 1/WEEK
     Dates: start: 20130601
  2. IDURSULFASE [Suspect]
     Active Substance: IDURSULFASE
     Dosage: UNK UNK, 1/WEEK
  3. IDURSULFASE [Suspect]
     Active Substance: IDURSULFASE
     Dosage: 4 DOSAGE FORM, 1/WEEK
     Dates: start: 20130609
  4. IDURSULFASE [Suspect]
     Active Substance: IDURSULFASE
     Dosage: UNK UNK, 1/WEEK
     Dates: start: 20200103
  5. IDURSULFASE [Suspect]
     Active Substance: IDURSULFASE
     Dosage: 24 MILLIGRAM, 1/WEEK
  6. IDURSULFASE [Suspect]
     Active Substance: IDURSULFASE
     Dosage: UNK UNK, 1/WEEK

REACTIONS (26)
  - Spinal cord injury [Recovered/Resolved]
  - Incorrect dose administered [Unknown]
  - Inappropriate schedule of product administration [Recovering/Resolving]
  - Adrenergic syndrome [Unknown]
  - Electrocardiogram abnormal [Unknown]
  - Pain [Unknown]
  - Hypertension [Unknown]
  - Illness [Recovered/Resolved]
  - Malaise [Recovering/Resolving]
  - Oropharyngeal pain [Recovering/Resolving]
  - Blood pressure increased [Recovering/Resolving]
  - Red cell distribution width decreased [Not Recovered/Not Resolved]
  - Lymphocyte count increased [Not Recovered/Not Resolved]
  - Neutrophil count decreased [Not Recovered/Not Resolved]
  - Product dose omission issue [Recovering/Resolving]
  - Product availability issue [Recovering/Resolving]
  - Heart rate decreased [Recovered/Resolved]
  - Treatment noncompliance [Not Recovered/Not Resolved]
  - Muscular weakness [Unknown]
  - Muscle spasms [Unknown]
  - Anxiety [Unknown]
  - Catastrophic reaction [Unknown]
  - Back pain [Recovering/Resolving]
  - Fatigue [Unknown]
  - Pyrexia [Recovering/Resolving]
  - Arthralgia [Recovering/Resolving]

NARRATIVE: CASE EVENT DATE: 20180921
